FAERS Safety Report 5803450-1 (Version None)
Quarter: 2008Q3

REPORT INFORMATION
  Report Type: 
  Country: None (occurrence: None)
  Receive Date: 20080708
  Receipt Date: 20080626
  Transmission Date: 20090109
  Serious: Yes (Hospitalization)
  Sender: FDA-Public Use
  Company Number: FR-WYE-H04747708

PATIENT
  Age: 50 Year
  Sex: Male

DRUGS (1)
  1. PANTOPRAZOLE SODIUM [Suspect]
     Route: 048
     Dates: start: 20070913, end: 20070927

REACTIONS (1)
  - SUICIDE ATTEMPT [None]
